FAERS Safety Report 8236691-7 (Version None)
Quarter: 2012Q1

REPORT INFORMATION
  Report Type: 
  Country: None (occurrence: None)
  Receive Date: 20120326
  Receipt Date: 20120326
  Transmission Date: 20120608
  Serious: Yes (Life-Threatening)
  Sender: FDA-Public Use
  Company Number: None

PATIENT
  Age: 17 Year
  Sex: Female
  Weight: 47.6277 kg

DRUGS (1)
  1. MINOCYCLINE HCL [Suspect]
     Indication: ACNE
     Dosage: 100 MG QHS PO
     Route: 048
     Dates: start: 20120113, end: 20120217

REACTIONS (5)
  - APPETITE DISORDER [None]
  - CRYING [None]
  - SELF ESTEEM DECREASED [None]
  - DECREASED INTEREST [None]
  - DEPRESSION [None]
